FAERS Safety Report 8203654-7 (Version None)
Quarter: 2012Q1

REPORT INFORMATION
  Report Type: 
  Country: None (occurrence: None)
  Receive Date: 20120308
  Receipt Date: 20120305
  Transmission Date: 20120608
  Serious: Yes (Death)
  Sender: FDA-Public Use
  Company Number: SP05583

PATIENT
  Sex: Male

DRUGS (2)
  1. XIFAXAN [Suspect]
     Indication: HEPATIC CIRRHOSIS
     Route: 048
     Dates: start: 20111001
  2. XIFAXAN [Suspect]
     Indication: HEPATITIS C
     Route: 048
     Dates: start: 20111001

REACTIONS (5)
  - HEMIPLEGIA [None]
  - CEREBRAL HAEMORRHAGE [None]
  - HEADACHE [None]
  - TERMINAL STATE [None]
  - CEREBROVASCULAR ACCIDENT [None]
